FAERS Safety Report 8927949 (Version 1)
Quarter: 2012Q4

REPORT INFORMATION
  Report Type: Spontaneous
  Country: US (occurrence: None)
  Receive Date: 20121126
  Receipt Date: 20121126
  Transmission Date: 20130627
  Serious: No
  Sender: FDA-Public Use
  Company Number: None

PATIENT
  Age: 65 Year
  Sex: Male
  Weight: 86.18 kg

DRUGS (1)
  1. LABETALOL [Suspect]
     Indication: BLOOD PRESSURE HIGH
     Dates: start: 20121101, end: 20121124

REACTIONS (4)
  - Dizziness [None]
  - Dyspnoea [None]
  - Product substitution issue [None]
  - Product quality issue [None]
